FAERS Safety Report 9193001 (Version 1)
Quarter: 2013Q1

REPORT INFORMATION
  Report Type: Spontaneous
  Country: US (occurrence: None)
  Receive Date: 20130314
  Receipt Date: 20130314
  Transmission Date: 20140127
  Serious: Yes (Other)
  Sender: FDA-Public Use
  Company Number: A13-023

PATIENT
  Age: 31 Year
  Sex: Female
  Weight: 74.84 kg

DRUGS (4)
  1. WHITE OAK [Suspect]
     Indication: HYPERSENSITIVITY
     Dosage: 1 DROP; ONCE; 057
     Dates: start: 20130227
  2. ZYRTEC [Concomitant]
  3. SINGULAIR [Concomitant]
  4. NASONEX [Concomitant]

REACTIONS (4)
  - Dyspnoea [None]
  - Local swelling [None]
  - Headache [None]
  - Chest discomfort [None]
